FAERS Safety Report 19946973 (Version 1)
Quarter: 2021Q4

REPORT INFORMATION
  Report Type: Spontaneous
  Country: FR (occurrence: FR)
  Receive Date: 20211012
  Receipt Date: 20211012
  Transmission Date: 20220303
  Serious: Yes (Hospitalization)
  Sender: FDA-Public Use
  Company Number: FR-ABBVIE-21K-056-4116093-00

PATIENT
  Age: 8 Month
  Sex: Male

DRUGS (2)
  1. VALPROATE SODIUM [Suspect]
     Active Substance: VALPROATE SODIUM
     Indication: Product used for unknown indication
     Route: 048
     Dates: start: 19870320, end: 19870404
  2. COSYNTROPIN [Concomitant]
     Active Substance: COSYNTROPIN
     Indication: Product used for unknown indication
     Route: 065

REACTIONS (2)
  - Renal tubular disorder [Recovered/Resolved]
  - Fanconi syndrome [Recovered/Resolved]

NARRATIVE: CASE EVENT DATE: 19870330
